FAERS Safety Report 23860361 (Version 1)
Quarter: 2024Q2

REPORT INFORMATION
  Report Type: Spontaneous
  Country: US (occurrence: US)
  Receive Date: 20240515
  Receipt Date: 20240515
  Transmission Date: 20240715
  Serious: Yes (Other)
  Sender: FDA-Public Use
  Company Number: US-ABBVIE-5759641

PATIENT
  Age: 79 Year
  Sex: Male

DRUGS (1)
  1. REFRESH TEARS [Suspect]
     Active Substance: CARBOXYMETHYLCELLULOSE SODIUM
     Indication: Dry eye
     Route: 047
     Dates: start: 202308, end: 20240513

REACTIONS (10)
  - Cataract [Unknown]
  - Dry eye [Unknown]
  - Cataract [Unknown]
  - Abnormal sensation in eye [Unknown]
  - Glaucoma [Unknown]
  - Eye disorder [Unknown]
  - Weight decreased [Unknown]
  - Insomnia [Unknown]
  - Ocular discomfort [Unknown]
  - Drug dependence [Unknown]

NARRATIVE: CASE EVENT DATE: 20240201
